FAERS Safety Report 9839337 (Version 1)
Quarter: 2014Q1

REPORT INFORMATION
  Report Type: Spontaneous
  Country: DE (occurrence: DE)
  Receive Date: 20140123
  Receipt Date: 20140123
  Transmission Date: 20141002
  Serious: Yes (Other)
  Sender: FDA-Public Use
  Company Number: DE-TEVA-457850USA

PATIENT
  Age: 72 Year
  Sex: Female

DRUGS (1)
  1. BENDAMUSTINE [Suspect]
     Indication: CHRONIC LYMPHOCYTIC LEUKAEMIA RECURRENT
     Dosage: UNKNOWN/D
     Route: 065

REACTIONS (1)
  - Brain natriuretic peptide increased [Recovering/Resolving]
